FAERS Safety Report 7756481-9 (Version None)
Quarter: 2011Q3

REPORT INFORMATION
  Report Type: 
  Country: None (occurrence: None)
  Receive Date: 20110907
  Receipt Date: 20110825
  Transmission Date: 20111222
  Serious: Yes (Other)
  Sender: FDA-Public Use
  Company Number: 20100916CINRY1610

PATIENT
  Age: 27 Year
  Sex: Female
  Weight: 100.6985 kg

DRUGS (4)
  1. CINRYZE (C1 ESTERASE INHIBITOR (HUMAN)) (500 UNIT, INJECTION FOR INFUS [Suspect]
     Indication: PROPHYLAXIS
     Dosage: (1000 UNIT, 2 IN 1 WK), INTRAVENOUS
     Route: 042
     Dates: start: 20100629, end: 20100830
  2. CINRYZE (C1 ESTERASE INHIBITOR (HUMAN)) (500 UNIT, INJECTION FOR INFUS [Suspect]
     Indication: HEREDITARY ANGIOEDEMA
     Dosage: (1000 UNIT, 2 IN 1 WK), INTRAVENOUS
     Route: 042
     Dates: start: 20100629, end: 20100830
  3. CINRYZE (C1 ESTERASE INHIBITOR (HUMAN)) (500 UNIT, INJECTION FOR INFUS [Suspect]
     Indication: PROPHYLAXIS
     Dosage: (1000 UNIT, 2 IN 1 WK), INTRAVENOUS
     Route: 042
     Dates: start: 20100909
  4. CINRYZE (C1 ESTERASE INHIBITOR (HUMAN)) (500 UNIT, INJECTION FOR INFUS [Suspect]
     Indication: HEREDITARY ANGIOEDEMA
     Dosage: (1000 UNIT, 2 IN 1 WK), INTRAVENOUS
     Route: 042
     Dates: start: 20100909

REACTIONS (8)
  - ABDOMINAL PAIN [None]
  - URINARY TRACT INFECTION [None]
  - OEDEMA PERIPHERAL [None]
  - PREGNANCY [None]
  - DEHYDRATION [None]
  - NAUSEA [None]
  - PRESYNCOPE [None]
  - VOMITING [None]
